FAERS Safety Report 23808818 (Version 1)
Quarter: 2024Q2

REPORT INFORMATION
  Report Type: Spontaneous
  Country: NZ (occurrence: None)
  Receive Date: 20240502
  Receipt Date: 20240502
  Transmission Date: 20240716
  Serious: Yes (Death)
  Sender: FDA-Public Use
  Company Number: 2024A102875

PATIENT

DRUGS (1)
  1. DURVALUMAB [Suspect]
     Active Substance: DURVALUMAB
     Indication: Non-small cell lung cancer stage III
     Route: 042

REACTIONS (1)
  - Death [Fatal]
